FAERS Safety Report 8623918-2 (Version None)
Quarter: 2012Q3

REPORT INFORMATION
  Report Type: 
  Country: None (occurrence: None)
  Receive Date: 20120827
  Receipt Date: 20120821
  Transmission Date: 20120928
  Serious: Yes (Hospitalization)
  Sender: FDA-Public Use
  Company Number: PHEH2012US013575

PATIENT
  Sex: Female

DRUGS (1)
  1. GILENYA [Suspect]
     Indication: MULTIPLE SCLEROSIS
     Dosage: 0.5 MG, QD
     Route: 048
     Dates: start: 20120116, end: 20120601

REACTIONS (7)
  - MUSCULAR WEAKNESS [None]
  - NEURALGIA [None]
  - WHITE BLOOD CELL COUNT DECREASED [None]
  - BLISTER [None]
  - INFECTION [None]
  - BACK PAIN [None]
  - MULTIPLE SCLEROSIS RELAPSE [None]
